FAERS Safety Report 6899276-0 (Version None)
Quarter: 2010Q3

REPORT INFORMATION
  Report Type: 
  Country: None (occurrence: None)
  Receive Date: 20100802
  Receipt Date: 20080625
  Transmission Date: 20110219
  Serious: Yes (Other)
  Sender: FDA-Public Use
  Company Number: US-PFIZER INC-2006070253

PATIENT
  Sex: Female
  Weight: 43.5 kg

DRUGS (3)
  1. LYRICA [Suspect]
     Indication: NERVE INJURY
     Route: 065
  2. LYRICA [Suspect]
     Indication: ANTIINFLAMMATORY THERAPY
  3. FOSAMAX [Concomitant]
     Route: 065

REACTIONS (7)
  - DEPRESSION [None]
  - DRUG DEPENDENCE [None]
  - HEADACHE [None]
  - HYPOKINESIA [None]
  - INSOMNIA [None]
  - SOMNOLENCE [None]
  - WITHDRAWAL SYNDROME [None]
